FAERS Safety Report 10906993 (Version 1)
Quarter: 2015Q1

REPORT INFORMATION
  Report Type: Spontaneous
  Country: US (occurrence: None)
  Receive Date: 20150309
  Receipt Date: 20150309
  Transmission Date: 20150721
  Serious: Yes (Other)
  Sender: FDA-Public Use
  Company Number: US-H14001-15-00338

PATIENT
  Age: 31 Year
  Sex: Male

DRUGS (1)
  1. MEFLOQUINE [Suspect]
     Active Substance: MEFLOQUINE
     Indication: MALARIA PROPHYLAXIS
     Route: 048
     Dates: start: 201208

REACTIONS (7)
  - Anxiety [None]
  - Alopecia [None]
  - Feeling abnormal [None]
  - Paranoia [None]
  - Discomfort [None]
  - Nausea [None]
  - Depersonalisation [None]

NARRATIVE: CASE EVENT DATE: 2012
